FAERS Safety Report 19693391 (Version 1)
Quarter: 2021Q3

REPORT INFORMATION
  Report Type: Spontaneous
  Country: US (occurrence: US)
  Receive Date: 20210812
  Receipt Date: 20210812
  Transmission Date: 20211014
  Serious: No
  Sender: FDA-Public Use
  Company Number: US-SA-2021SA265352

PATIENT
  Sex: Female

DRUGS (18)
  1. HYDROXYCHLOROQUINE SULFATE. [Concomitant]
     Active Substance: HYDROXYCHLOROQUINE SULFATE
     Indication: RHEUMATOID ARTHRITIS
     Dosage: 59599 MG
  2. BUPROPION. [Concomitant]
     Active Substance: BUPROPION
     Dosage: 59599 MG
  3. AMITRIPTYLINE [Concomitant]
     Active Substance: AMITRIPTYLINE
     Dosage: 3 MG
  4. SUCCINATE SODIUM [Concomitant]
     Dosage: 10 MG
  5. ISOSORBIDE DINITRATE. [Concomitant]
     Active Substance: ISOSORBIDE DINITRATE
  6. RANOLAZINE. [Concomitant]
     Active Substance: RANOLAZINE
     Dosage: UNK, BID
  7. MYRBETRIQ [Concomitant]
     Active Substance: MIRABEGRON
     Dosage: 10 MG, QD
  8. ZOLPIDEM TARTRATE. [Concomitant]
     Active Substance: ZOLPIDEM TARTRATE
     Dosage: 65MG
  9. NITROGLYCERIN. [Concomitant]
     Active Substance: NITROGLYCERIN
     Dosage: 100 MG
  10. CALCIUM +D3 [Concomitant]
     Active Substance: CALCIUM\CHOLECALCIFEROL
     Dosage: 600MG
  11. LEFLUNOMIDE. [Concomitant]
     Active Substance: LEFLUNOMIDE
     Indication: RHEUMATOID ARTHRITIS
     Dosage: 25 MG
  12. CYCLOBENZAPRINE HCL [Concomitant]
     Active Substance: CYCLOBENZAPRINE HYDROCHLORIDE
  13. FERROUS SULFATE. [Concomitant]
     Active Substance: FERROUS SULFATE
     Dosage: 65 MG
  14. DILTIAZEM. [Concomitant]
     Active Substance: DILTIAZEM
     Dosage: 125 MG
  15. MIRTAZAPINE. [Concomitant]
     Active Substance: MIRTAZAPINE
     Dosage: 25 MG
  16. POTASSIUM [Concomitant]
     Active Substance: POTASSIUM
  17. ELIQUIS [Concomitant]
     Active Substance: APIXABAN
     Dosage: 125MG
  18. KEVZARA [Suspect]
     Active Substance: SARILUMAB
     Indication: RHEUMATOID ARTHRITIS
     Dosage: 200 MG, QOW
     Route: 058
     Dates: start: 20210602

REACTIONS (1)
  - Surgery [Unknown]
